FAERS Safety Report 4566362-X (Version None)
Quarter: 2005Q1

REPORT INFORMATION
  Report Type: 
  Country: None (occurrence: None)
  Receive Date: 20050201
  Receipt Date: 20050105
  Transmission Date: 20050727
  Serious: Yes (Life-Threatening, Hospitalization, Other)
  Sender: FDA-Public Use
  Company Number: PHHO2005CA00593

PATIENT
  Sex: Female

DRUGS (11)
  1. PAXIL [Concomitant]
  2. TOPAMAX [Concomitant]
  3. HISTANTIL [Concomitant]
     Dosage: 50 MG, QHS
  4. DALMANE [Concomitant]
     Dosage: 30 MG, QHS
  5. AAS [Concomitant]
     Dosage: 80 MG, QD
  6. LOXAPINE HCL [Concomitant]
     Dosage: 25 MG, QD
  7. AVANDIA [Concomitant]
     Dosage: 4 MG, QD
  8. GLUCOPHAGE [Concomitant]
  9. ALTACE [Concomitant]
     Dosage: 5 MG, QD
  10. EZETROL [Suspect]
     Dates: start: 20041001
  11. CLOZARIL [Suspect]
     Indication: SCHIZOPHRENIA
     Dosage: 500MG DAILY DOSE
     Dates: start: 20040405, end: 20041230

REACTIONS (5)
  - COMA [None]
  - ENCEPHALOPATHY [None]
  - GENERAL PHYSICAL HEALTH DETERIORATION [None]
  - HEPATITIS [None]
  - INTUBATION [None]
